FAERS Safety Report 21529605 (Version 2)
Quarter: 2022Q4

REPORT INFORMATION
  Report Type: Spontaneous
  Country: LK (occurrence: LK)
  Receive Date: 20221031
  Receipt Date: 20221103
  Transmission Date: 20230113
  Serious: Yes (Hospitalization, Other)
  Sender: FDA-Public Use
  Company Number: LK-MLMSERVICE-20221014-3860624-1

PATIENT
  Age: 19 Year
  Sex: Female
  Weight: 30 kg

DRUGS (5)
  1. METHYLPREDNISOLONE SODIUM SUCCINATE [Suspect]
     Active Substance: METHYLPREDNISOLONE SODIUM SUCCINATE
     Indication: Immunosuppressant drug therapy
     Dosage: 500 MG, SINGLE
  2. PREDNISOLONE [Suspect]
     Active Substance: PREDNISOLONE
     Indication: Immunosuppressant drug therapy
     Dosage: 20 MG, 1X/DAY
  3. TACROLIMUS [Suspect]
     Active Substance: TACROLIMUS
     Indication: Immunosuppressant drug therapy
     Dosage: 1.5 MG, 2X/DAY
  4. MANNITOL [Concomitant]
     Active Substance: MANNITOL
     Dosage: 20% MANNITOL 0.5G/KG
  5. FUROSEMIDE [Concomitant]
     Active Substance: FUROSEMIDE
     Dosage: 30 MG

REACTIONS (1)
  - Posterior reversible encephalopathy syndrome [Recovered/Resolved]
